FAERS Safety Report 9109265 (Version 2)
Quarter: 2013Q2

REPORT INFORMATION
  Report Type: Spontaneous
  Country: DE (occurrence: DE)
  Receive Date: 20130222
  Receipt Date: 20130524
  Transmission Date: 20140414
  Serious: Yes (Other)
  Sender: FDA-Public Use
  Company Number: PHHY2013DE017254

PATIENT
  Age: 70 Year
  Sex: Female

DRUGS (2)
  1. ZOMETA [Suspect]
     Dosage: UNK UKN, UNK
  2. FEMARA [Suspect]
     Dosage: 2.5 MG, DAILY
     Dates: start: 2011

REACTIONS (1)
  - Intraocular pressure increased [Unknown]
